FAERS Safety Report 11674431 (Version 1)
Quarter: 2015Q4

REPORT INFORMATION
  Report Type: Spontaneous
  Country: US (occurrence: US)
  Receive Date: 20151028
  Receipt Date: 20151028
  Transmission Date: 20160304
  Serious: Yes (Other)
  Sender: FDA-Public Use
  Company Number: US-PFIZER INC-2015348535

PATIENT
  Age: 89 Year
  Sex: Female
  Weight: 48 kg

DRUGS (1)
  1. IBRANCE [Suspect]
     Active Substance: PALBOCICLIB
     Indication: BREAST CANCER
     Dosage: EVERY 3 WEEKS
     Route: 048

REACTIONS (11)
  - Weight decreased [Unknown]
  - Renal disorder [Unknown]
  - Breast cancer [Unknown]
  - Diarrhoea [Unknown]
  - Pigmentation disorder [Unknown]
  - Limb discomfort [Unknown]
  - Pain in extremity [Unknown]
  - Asthenia [Unknown]
  - Disease progression [Unknown]
  - Gait disturbance [Unknown]
  - Hypoaesthesia [Unknown]
